FAERS Safety Report 8648459 (Version 2)
Quarter: 2012Q4

REPORT INFORMATION
  Report Type: 
  Country: US (occurrence: US)
  Receive Date: 20120703
  Receipt Date: 20120907
  Transmission Date: 20130627
  Serious: Yes (Hospitalization)
  Sender: FDA-Public Use
  Company Number: US-ELI_LILLY_AND_COMPANY-US201206009024

PATIENT
  Age: 52 None
  Sex: Male
  Weight: 96.6 kg

DRUGS (4)
  1. EFFIENT [Suspect]
     Indication: CORONARY ARTERY DISEASE
     Dosage: 10 mg, qd
     Route: 048
  2. SIMVASTATIN [Concomitant]
  3. TOPROL [Concomitant]
  4. ASA [Concomitant]
     Dosage: 81 mg, unknown
     Route: 065

REACTIONS (1)
  - Coronary artery occlusion [Recovered/Resolved]
